FAERS Safety Report 13082152 (Version 13)
Quarter: 2018Q3

REPORT INFORMATION
  Report Type: Report from Study
  Country: ES (occurrence: ES)
  Receive Date: 20170103
  Receipt Date: 20180801
  Transmission Date: 20181010
  Serious: Yes (Hospitalization)
  Sender: FDA-Public Use
  Company Number: ES-SA-2016SA223094

PATIENT
  Age: 47 Year
  Sex: Female

DRUGS (12)
  1. ALEMTUZUMAB [Suspect]
     Active Substance: ALEMTUZUMAB
     Indication: MULTIPLE SCLEROSIS RELAPSE
     Dosage: 12 MG,QD
     Route: 041
     Dates: start: 20161121, end: 20161125
  2. ACICLOVIR [Concomitant]
     Active Substance: ACYCLOVIR
     Dosage: 200 MG,Q12H
     Route: 065
     Dates: start: 20171127, end: 20180109
  3. SULFAMETHOXAZOLE [Concomitant]
     Active Substance: SULFAMETHOXAZOLE
     Indication: PROPHYLAXIS
     Dosage: UNK UNK,TIW
     Route: 065
     Dates: start: 20161121, end: 20170201
  4. OMEPRAZOLE. [Concomitant]
     Active Substance: OMEPRAZOLE
     Indication: PROPHYLAXIS
     Dosage: 20 MG, QD
     Route: 065
     Dates: start: 20171127, end: 20171129
  5. SULFAMETHOXAZOLE [Concomitant]
     Active Substance: SULFAMETHOXAZOLE
     Dosage: UNK UNK,TIW
     Route: 065
     Dates: start: 20171127, end: 20180109
  6. DIMETHYL FUMARATE [Concomitant]
     Active Substance: DIMETHYL FUMARATE
     Dosage: UNK UNK,UNK
     Route: 065
     Dates: start: 20150918, end: 20161118
  7. ALEMTUZUMAB [Suspect]
     Active Substance: ALEMTUZUMAB
     Dosage: 12 MG,QD
     Route: 041
     Dates: start: 20171127, end: 20171129
  8. ACICLOVIR [Concomitant]
     Active Substance: ACYCLOVIR
     Indication: PROPHYLAXIS
     Dosage: 200 MG,QD
     Route: 065
     Dates: start: 20161121, end: 20170201
  9. METHYLPREDNISOLONE. [Concomitant]
     Active Substance: METHYLPREDNISOLONE
     Indication: PROPHYLAXIS
     Dosage: 400 MG,UNK
     Route: 048
     Dates: start: 20161121, end: 20170201
  10. METHYLPREDNISOLONE. [Concomitant]
     Active Substance: METHYLPREDNISOLONE
     Dosage: 1 G, QD
     Route: 048
     Dates: start: 20171127, end: 20171129
  11. AMITRIPTYLINE [Concomitant]
     Active Substance: AMITRIPTYLINE
     Indication: DYSAESTHESIA
     Dosage: 20 MG,QD
     Route: 065
     Dates: start: 20150902, end: 20150918
  12. SEPTRIN [Concomitant]
     Active Substance: SULFAMETHOXAZOLE\TRIMETHOPRIM
     Indication: PROPHYLAXIS
     Dosage: UNK UNK,QD
     Route: 048
     Dates: start: 20161121, end: 20170201

REACTIONS (10)
  - Vomiting [Recovered/Resolved]
  - Tension headache [Recovered/Resolved]
  - Pharyngitis [Recovered/Resolved]
  - Rash maculo-papular [Recovered/Resolved]
  - Vitamin D deficiency [Recovering/Resolving]
  - Nervousness [Recovered/Resolved]
  - Vitamin D deficiency [Recovering/Resolving]
  - Asthenia [Not Recovered/Not Resolved]
  - Vitamin D deficiency [Recovering/Resolving]
  - Diarrhoea [Recovered/Resolved]

NARRATIVE: CASE EVENT DATE: 20161124
